FAERS Safety Report 19286237 (Version 1)
Quarter: 2021Q2

REPORT INFORMATION
  Report Type: Spontaneous
  Country: US (occurrence: US)
  Receive Date: 20210521
  Receipt Date: 20210521
  Transmission Date: 20210717
  Serious: No
  Sender: FDA-Public Use
  Company Number: US-RADIUS HEALTH INC.-2020US002353

PATIENT
  Sex: Female

DRUGS (1)
  1. TYMLOS [Suspect]
     Active Substance: ABALOPARATIDE
     Indication: OSTEOPOROSIS
     Dosage: 80 MCG, DAILY
     Route: 058
     Dates: start: 202006

REACTIONS (16)
  - Injection site urticaria [Unknown]
  - Tremor [Unknown]
  - Fatigue [Unknown]
  - Chest pain [Unknown]
  - Formication [Unknown]
  - Asthenia [Unknown]
  - Burning sensation [Unknown]
  - Spinal pain [Unknown]
  - Injection site pruritus [Unknown]
  - Pruritus [Unknown]
  - Product administered at inappropriate site [Unknown]
  - Condition aggravated [Unknown]
  - Injection site bruising [Unknown]
  - Hot flush [Unknown]
  - Hypoaesthesia [Unknown]
  - Palpitations [Unknown]
